FAERS Safety Report 8075815-1 (Version None)
Quarter: 2012Q1

REPORT INFORMATION
  Report Type: 
  Country: None (occurrence: None)
  Receive Date: 20120127
  Receipt Date: 20120113
  Transmission Date: 20120608
  Serious: Yes (Other)
  Sender: FDA-Public Use
  Company Number: JP-PFIZER INC-2012021770

PATIENT
  Age: 59 Year
  Sex: Female

DRUGS (6)
  1. HOKUNALIN [Suspect]
     Dosage: 1.5 G DAILY
     Route: 048
     Dates: end: 20111201
  2. CLARITHROMYCIN [Suspect]
     Dosage: 200MG DAILY
     Route: 048
     Dates: end: 20111201
  3. LIPITOR [Suspect]
     Dosage: 10 MG DAILY
     Route: 048
     Dates: start: 20110301
  4. AMLODIPINE [Suspect]
     Dosage: 5 MG DAILY
     Route: 048
  5. CODEINE PHOSPHATE HYDRATE [Suspect]
     Dosage: 6 G DAILY
     Route: 048
     Dates: end: 20111201
  6. MUCODYNE [Suspect]
     Dosage: 1500 MG, DAILY
     Route: 048
     Dates: end: 20111201

REACTIONS (2)
  - DYSGEUSIA [None]
  - HYPOSMIA [None]
